FAERS Safety Report 6593941-0 (Version None)
Quarter: 2010Q1

REPORT INFORMATION
  Report Type: 
  Country: None (occurrence: None)
  Receive Date: 20100222
  Receipt Date: 20100215
  Transmission Date: 20100710
  Serious: Yes (Hospitalization)
  Sender: FDA-Public Use
  Company Number: US-RB-002636-10

PATIENT
  Age: 53 Year
  Sex: Female

DRUGS (2)
  1. SUBOXONE [Suspect]
     Indication: DRUG USE FOR UNKNOWN INDICATION
     Dosage: UNKNOWN DOSING DETAILS
     Route: 065
  2. HALDOL [Suspect]
     Indication: DRUG USE FOR UNKNOWN INDICATION
     Dosage: UNKNOWN DOSING DETAILS
     Route: 065

REACTIONS (5)
  - CRYING [None]
  - HYPERTENSION [None]
  - MEMORY IMPAIRMENT [None]
  - PANIC ATTACK [None]
  - PARANOIA [None]
